FAERS Safety Report 9419205 (Version 1)
Quarter: 2013Q3

REPORT INFORMATION
  Report Type: Spontaneous
  Country: US (occurrence: US)
  Receive Date: 20130725
  Receipt Date: 20130725
  Transmission Date: 20140515
  Serious: Yes (Other)
  Sender: FDA-Public Use
  Company Number: US-JNJFOC-20130711659

PATIENT
  Sex: Male
  Weight: 107.96 kg

DRUGS (16)
  1. REMICADE [Suspect]
     Indication: PSORIATIC ARTHROPATHY
     Route: 042
     Dates: start: 200901, end: 200907
  2. METHOTREXATE [Suspect]
     Indication: PSORIATIC ARTHROPATHY
     Dosage: MAX- MASS
     Route: 048
     Dates: start: 2010
  3. METHOTREXATE [Suspect]
     Indication: PSORIATIC ARTHROPATHY
     Route: 050
     Dates: end: 201207
  4. LONG ACTING INSULIN [Concomitant]
     Indication: DIABETES MELLITUS
     Dosage: 60UNITS
     Route: 058
  5. REGULAR INSULIN [Concomitant]
     Indication: DIABETES MELLITUS
     Route: 058
  6. VITAMIN D [Concomitant]
     Indication: PSORIATIC ARTHROPATHY
     Route: 048
  7. ERGOCALCIFEROL [Concomitant]
     Indication: PSORIATIC ARTHROPATHY
     Route: 048
  8. SIMVASTATIN [Concomitant]
     Indication: BLOOD CHOLESTEROL
     Dosage: 1/2 TABLET, DAILY
     Route: 048
  9. LISINOPRIL [Concomitant]
     Indication: BLOOD PRESSURE
     Dosage: 8 YEARS, DAILY
     Route: 048
  10. LUTEIN [Concomitant]
     Route: 065
  11. MULTIVITAMINS [Concomitant]
     Indication: ROUTINE HEALTH MAINTENANCE
     Route: 048
  12. GABAPENTIN [Concomitant]
     Indication: DIABETIC NEUROPATHY
     Route: 065
  13. RANITIDINE [Concomitant]
     Indication: HYPERCHLORHYDRIA
     Route: 065
  14. LACTULOSE [Concomitant]
     Indication: HEPATIC CIRRHOSIS
     Route: 065
  15. ALBUTEROL [Concomitant]
     Indication: CHRONIC OBSTRUCTIVE PULMONARY DISEASE
     Dosage: 2 PUFFS 4 TIMES A DAY
     Route: 055
  16. CORTISONE [Concomitant]
     Indication: DIABETIC NEUROPATHY
     Route: 065

REACTIONS (3)
  - Hepatic cirrhosis [Not Recovered/Not Resolved]
  - Drug specific antibody present [Unknown]
  - Drug effect decreased [Recovered/Resolved]
